FAERS Safety Report 6150045-9 (Version None)
Quarter: 2009Q2

REPORT INFORMATION
  Report Type: 
  Country: None (occurrence: None)
  Receive Date: 20090407
  Receipt Date: 20090407
  Transmission Date: 20091009
  Serious: Yes (Other)
  Sender: FDA-Public Use
  Company Number: None

PATIENT
  Sex: Female
  Weight: 79.8331 kg

DRUGS (1)
  1. BONIVA [Suspect]
     Indication: OSTEOPENIA
     Route: 042
     Dates: start: 20090216, end: 20090216

REACTIONS (7)
  - ARTHRALGIA [None]
  - CONJUNCTIVITIS [None]
  - ERYTHEMA [None]
  - INFLAMMATION [None]
  - PAIN IN EXTREMITY [None]
  - PERIORBITAL HAEMATOMA [None]
  - VISION BLURRED [None]
